FAERS Safety Report 9995009 (Version 2)
Quarter: 2014Q2

REPORT INFORMATION
  Report Type: Spontaneous
  Country: JP (occurrence: JP)
  Receive Date: 20140311
  Receipt Date: 20140502
  Transmission Date: 20141212
  Serious: Yes (Hospitalization)
  Sender: FDA-Public Use
  Company Number: JP-JNJFOC-20140303802

PATIENT
  Age: 71 Year
  Sex: Male
  Weight: 66 kg

DRUGS (5)
  1. XARELTO [Suspect]
     Indication: CEREBROVASCULAR ACCIDENT PROPHYLAXIS
     Route: 048
     Dates: start: 20131118, end: 20140225
  2. XARELTO [Suspect]
     Indication: ATRIAL FIBRILLATION
     Route: 048
     Dates: start: 20131118, end: 20140225
  3. BAYASPIRIN [Concomitant]
     Route: 048
  4. BEPRIDIL [Concomitant]
     Route: 048
  5. CIBENOL [Concomitant]
     Route: 048

REACTIONS (1)
  - Interstitial lung disease [Recovered/Resolved]
